FAERS Safety Report 10313584 (Version 1)
Quarter: 2014Q3

REPORT INFORMATION
  Report Type: Spontaneous
  Country: RO (occurrence: RO)
  Receive Date: 20140718
  Receipt Date: 20140718
  Transmission Date: 20150326
  Serious: Yes (Other)
  Sender: FDA-Public Use
  Company Number: RO-WATSON-2014-15347

PATIENT

DRUGS (3)
  1. IBUPROFEN (UNKNOWN) [Suspect]
     Active Substance: IBUPROFEN
     Indication: PYREXIA
     Dosage: UNK, AT BEDTIME
     Route: 048
  2. FERROUS SULFATE (UNKNOWN) [Suspect]
     Active Substance: FERROUS SULFATE\FERROUS SULFATE, DRIED
     Indication: IRON DEFICIENCY ANAEMIA
     Dosage: UNK, AT BEDTIME
     Route: 048
  3. DOXYCYCLINE (UNKNOWN) [Suspect]
     Active Substance: DOXYCYCLINE
     Indication: ACNE
     Dosage: UNK, AT BEDTIME
     Route: 048

REACTIONS (1)
  - Oesophageal ulcer [Recovering/Resolving]
